FAERS Safety Report 20664300 (Version 1)
Quarter: 2022Q2

REPORT INFORMATION
  Report Type: Spontaneous
  Country: BR (occurrence: BR)
  Receive Date: 20220401
  Receipt Date: 20220401
  Transmission Date: 20220721
  Serious: Yes (Disabling)
  Sender: FDA-Public Use
  Company Number: BR-SA-SAC20220311000851

PATIENT
  Age: 11 Year
  Sex: Female
  Weight: 21 kg

DRUGS (1)
  1. LARONIDASE [Suspect]
     Active Substance: LARONIDASE
     Indication: Mucopolysaccharidosis I
     Dosage: 8 VIALS; QW
     Route: 042
     Dates: start: 20121130

REACTIONS (4)
  - Gait inability [Unknown]
  - Limb discomfort [Recovering/Resolving]
  - Bone disorder [Recovering/Resolving]
  - Speech disorder [Recovering/Resolving]

NARRATIVE: CASE EVENT DATE: 20220101
